FAERS Safety Report 7581219-8 (Version None)
Quarter: 2011Q2

REPORT INFORMATION
  Report Type: 
  Country: None (occurrence: None)
  Receive Date: 20110629
  Receipt Date: 20110620
  Transmission Date: 20111010
  Serious: Yes (Other)
  Sender: FDA-Public Use
  Company Number: DE-UCBSA-035751

PATIENT
  Sex: Female
  Weight: 80 kg

DRUGS (9)
  1. VIMPAT [Suspect]
     Route: 048
     Dates: start: 20100401, end: 20100501
  2. VIMPAT [Suspect]
     Indication: EPILEPSY
     Route: 048
  3. ASPIRIN [Concomitant]
     Indication: CARDIAC FAILURE
     Route: 048
  4. ERGONYL CHRONO [Concomitant]
     Indication: EPILEPSY
     Route: 048
     Dates: start: 20100201, end: 20100601
  5. VIMPAT [Suspect]
     Route: 048
     Dates: start: 20100501
  6. LASIX [Concomitant]
     Indication: GASTRITIS
     Route: 048
  7. ERGONYL CHRONO [Concomitant]
     Indication: PARTIAL SEIZURES
     Route: 048
     Dates: start: 20100201, end: 20100601
  8. TOPAMAX [Concomitant]
     Indication: HAEMODILUTION
     Route: 048
     Dates: start: 20100501
  9. VIMPAT [Suspect]
     Route: 048
     Dates: end: 20100709

REACTIONS (5)
  - GENERAL PHYSICAL HEALTH DETERIORATION [None]
  - DIZZINESS [None]
  - NAUSEA [None]
  - COGNITIVE DISORDER [None]
  - NYSTAGMUS [None]
